FAERS Safety Report 9523178 (Version 1)
Quarter: 2013Q3

REPORT INFORMATION
  Report Type: Spontaneous
  Country: FR (occurrence: FR)
  Receive Date: 20130913
  Receipt Date: 20130913
  Transmission Date: 20140515
  Serious: Yes (Other)
  Sender: FDA-Public Use
  Company Number: FR-GLAXOSMITHKLINE-B0663324A

PATIENT
  Age: 5 Year
  Sex: Female
  Weight: 30 kg

DRUGS (2)
  1. SERETIDE [Suspect]
     Indication: ASTHMA
     Dosage: 200MCG PER DAY
     Route: 055
     Dates: start: 200912, end: 201212
  2. AERIUS [Concomitant]
     Indication: ALLERGIC RESPIRATORY DISEASE
     Route: 048
     Dates: start: 2009

REACTIONS (7)
  - Nightmare [Recovered/Resolved]
  - Convulsion [Recovered/Resolved]
  - Salivary hypersecretion [Recovered/Resolved]
  - Vomiting [Recovered/Resolved]
  - Oral disorder [Recovered/Resolved]
  - Hypertonia [Recovered/Resolved]
  - Tremor [Recovered/Resolved]
